FAERS Safety Report 15208411 (Version 1)
Quarter: 2018Q3

REPORT INFORMATION
  Report Type: Spontaneous
  Country: US (occurrence: US)
  Receive Date: 20180727
  Receipt Date: 20180727
  Transmission Date: 20181010
  Serious: No
  Sender: FDA-Public Use
  Company Number: US-ALKERMES INC.-ALK-2017-000957

PATIENT
  Age: 44 Year
  Sex: Female
  Weight: 47.17 kg

DRUGS (4)
  1. PRISTIQ EXTENDED?RELEASE [Concomitant]
     Active Substance: DESVENLAFAXINE SUCCINATE
     Indication: PRODUCT USED FOR UNKNOWN INDICATION
     Dosage: UNK
  2. VIVITROL [Suspect]
     Active Substance: NALTREXONE
     Indication: ALCOHOLISM
     Dosage: 380 MG, QMO
     Route: 030
     Dates: start: 20161205, end: 20170103
  3. VYVANSE [Concomitant]
     Active Substance: LISDEXAMFETAMINE DIMESYLATE
     Indication: PRODUCT USED FOR UNKNOWN INDICATION
     Dosage: UNK
  4. TRAZODONE [Concomitant]
     Active Substance: TRAZODONE HYDROCHLORIDE
     Indication: PRODUCT USED FOR UNKNOWN INDICATION
     Dosage: UNK

REACTIONS (7)
  - Mass [Unknown]
  - Injection site swelling [Recovering/Resolving]
  - Injection site reaction [Recovering/Resolving]
  - Hypersensitivity [Unknown]
  - Anxiety [Unknown]
  - Weight decreased [Unknown]
  - Injection site pruritus [Recovering/Resolving]

NARRATIVE: CASE EVENT DATE: 201612
